FAERS Safety Report 23581948 (Version 1)
Quarter: 2024Q1

REPORT INFORMATION
  Report Type: Spontaneous
  Country: US (occurrence: US)
  Receive Date: 20240229
  Receipt Date: 20240229
  Transmission Date: 20240410
  Serious: No
  Sender: FDA-Public Use
  Company Number: US-Cardinal Health 414-NPHS-AE-23-27

PATIENT
  Age: 53 Year
  Sex: Female

DRUGS (1)
  1. TECHNETIUM TC-99M MEDRONATE KIT [Suspect]
     Active Substance: TECHNETIUM TC-99M MEDRONATE
     Indication: Bone scan
     Route: 042
     Dates: start: 20230925, end: 20230925

REACTIONS (10)
  - Tinnitus [Unknown]
  - Pain [Unknown]
  - Renal pain [Unknown]
  - Renal atrophy [Unknown]
  - Off label use [Recovered/Resolved]
  - Ear pain [Unknown]
  - Insomnia [Unknown]
  - Night sweats [Unknown]
  - Loss of consciousness [Unknown]
  - Sacral pain [Unknown]

NARRATIVE: CASE EVENT DATE: 20230925
